FAERS Safety Report 5039489-6 (Version None)
Quarter: 2006Q2

REPORT INFORMATION
  Report Type: 
  Country: None (occurrence: None)
  Receive Date: 20060629
  Receipt Date: 20060620
  Transmission Date: 20061013
  Serious: Yes (Death)
  Sender: FDA-Public Use
  Company Number: 2006CG01090

PATIENT
  Sex: Male

DRUGS (2)
  1. ZOMIG [Suspect]
     Route: 048
  2. PROPRANOLOL [Suspect]

REACTIONS (1)
  - ROAD TRAFFIC ACCIDENT [None]
